FAERS Safety Report 7363761-8 (Version None)
Quarter: 2011Q1

REPORT INFORMATION
  Report Type: 
  Country: None (occurrence: None)
  Receive Date: 20110321
  Receipt Date: 20110221
  Transmission Date: 20110831
  Serious: No
  Sender: FDA-Public Use
  Company Number: US-B.I. PHARMACEUTICALS,INC./RIDGEFIELD-2011-BP-00349BP

PATIENT
  Sex: Male

DRUGS (10)
  1. ASCORBIC ACID [Concomitant]
     Dosage: IU
     Route: 048
  2. ZINC [Concomitant]
     Dosage: 50 MG
     Route: 048
  3. BETACAROTINE [Concomitant]
     Dosage: 200 MG
     Route: 048
  4. PRAVASTATIN [Concomitant]
     Indication: BLOOD CHOLESTEROL INCREASED
     Dosage: 40 MG
     Route: 048
  5. ZETIA [Concomitant]
     Indication: BLOOD CHOLESTEROL INCREASED
     Dosage: 10 MG
     Route: 048
  6. TOPROL-XL [Concomitant]
     Indication: HYPERTENSION
     Dosage: 25 MG
     Route: 048
  7. PRADAXA [Suspect]
     Indication: ATRIAL FIBRILLATION
     Dosage: 300 MG
     Route: 048
     Dates: start: 20101124, end: 20101126
  8. CO Q10 [Concomitant]
     Indication: CARDIAC DISORDER
     Route: 048
  9. MULTIPLE VITAMIN [Concomitant]
     Dosage: 1000 MG
     Route: 048
  10. ASPIRIN [Concomitant]
     Dosage: 81 MG
     Route: 048

REACTIONS (2)
  - GASTROENTERITIS VIRAL [None]
  - MELAENA [None]
